FAERS Safety Report 4658699-0 (Version None)
Quarter: 2005Q2

REPORT INFORMATION
  Report Type: 
  Country: None (occurrence: None)
  Receive Date: 20050509
  Receipt Date: 20050421
  Transmission Date: 20051028
  Serious: Yes (Hospitalization, Other)
  Sender: FDA-Public Use
  Company Number: DSA_26335_2005

PATIENT
  Age: 44 Year
  Sex: Male

DRUGS (12)
  1. TEMESTA [Suspect]
     Indication: ANXIETY DISORDER
     Dosage: 1 MG BID PO
     Route: 048
  2. PREDNISONE TAB [Suspect]
     Indication: RENAL TRANSPLANT
     Dosage: 10 MG QD PO
     Route: 048
  3. SANDIMMUNE [Suspect]
     Indication: RENAL TRANSPLANT
     Dosage: 175 MG QD PO
     Route: 048
  4. TEMGESIC [Suspect]
     Indication: ARTHRITIS BACTERIAL
     Dosage: 0.2 MG TID PO
     Route: 048
     Dates: start: 20050127, end: 20050228
  5. CELLCEPT [Concomitant]
  6. RECORMON [Concomitant]
  7. FOLIC ACID [Concomitant]
  8. DAFALGAN [Concomitant]
  9. VANCOMYCIN [Concomitant]
  10. VITAMIN B NOS [Concomitant]
  11. BENERVA [Concomitant]
  12. FRAXIPARINE [Concomitant]

REACTIONS (9)
  - ARTHRITIS BACTERIAL [None]
  - ATRIAL FIBRILLATION [None]
  - BRONCHOPNEUMONIA [None]
  - CARDIAC DISORDER [None]
  - CHOLESTASIS [None]
  - DISEASE PROGRESSION [None]
  - HALLUCINATION [None]
  - RENAL FAILURE [None]
  - STAPHYLOCOCCAL INFECTION [None]
